FAERS Safety Report 5892321-0 (Version None)
Quarter: 2008Q3

REPORT INFORMATION
  Report Type: 
  Country: None (occurrence: None)
  Receive Date: 20080923
  Receipt Date: 20080910
  Transmission Date: 20090109
  Serious: Yes (Other)
  Sender: FDA-Public Use
  Company Number: DE-RANBAXY-2008RR-18042

PATIENT
  Sex: Female

DRUGS (1)
  1. CEFUROX BASICS 500 MG TABLETTEN [Suspect]
     Indication: ARTHROPOD BITE

REACTIONS (1)
  - PERINEAL INFECTION [None]
